FAERS Safety Report 4450668-9 (Version None)
Quarter: 2004Q3

REPORT INFORMATION
  Report Type: 
  Country: None (occurrence: None)
  Receive Date: 20040914
  Receipt Date: 20040914
  Transmission Date: 20050211
  Serious: Yes (Other)
  Sender: FDA-Public Use
  Company Number: None

PATIENT
  Sex: Female
  Weight: 58.9676 kg

DRUGS (2)
  1. ACCUTANE [Suspect]
     Indication: ACNE
     Dates: start: 19870101, end: 19870601
  2. ACCUTANE [Suspect]
     Indication: ACNE
     Dates: start: 19930101, end: 19930601

REACTIONS (3)
  - BURNS FIRST DEGREE [None]
  - PHOTOSENSITIVITY REACTION [None]
  - SUNBURN [None]
